FAERS Safety Report 8150641 (Version 2)
Quarter: 2013Q1

REPORT INFORMATION
  Report Type: Spontaneous
  Country: US (occurrence: US)
  Receive Date: 20110922
  Receipt Date: 20130213
  Transmission Date: 20140127
  Serious: Yes (Other)
  Sender: FDA-Public Use
  Company Number: US-ASTRAZENECA-2011SE12751

PATIENT
  Age: 579 Month
  Sex: Male

DRUGS (15)
  1. SEROQUEL [Suspect]
     Route: 048
     Dates: start: 20051011
  2. ACYCLOVIR [Concomitant]
     Dates: start: 20021210
  3. LISINOPRIL [Concomitant]
     Dates: start: 20051025
  4. LISINOPRIL [Concomitant]
     Route: 048
     Dates: start: 20101203
  5. LAMICTAL [Concomitant]
     Dosage: 100 TO 200 MG
     Dates: start: 20051223
  6. TOPAMAX [Concomitant]
     Dates: start: 20070301
  7. ASA [Concomitant]
     Route: 048
     Dates: start: 20101203
  8. ATIVAN [Concomitant]
     Route: 048
     Dates: start: 20101203
  9. BUPROPION HCL [Concomitant]
     Route: 048
     Dates: start: 20101203
  10. CIALIS [Concomitant]
     Route: 048
     Dates: start: 20101203
  11. MULTIVITAMINS [Concomitant]
     Route: 048
     Dates: start: 20101203
  12. NAPROXEN [Concomitant]
     Route: 048
     Dates: start: 20101203
  13. OMEGA 3 FATTY ACIDS [Concomitant]
     Route: 048
     Dates: start: 20101203
  14. PRILOSEC [Concomitant]
     Route: 048
     Dates: start: 20101203
  15. RISPERDAL [Concomitant]
     Route: 048
     Dates: start: 20101203

REACTIONS (3)
  - Pancreatitis [Unknown]
  - Diabetic coma [Unknown]
  - Type 2 diabetes mellitus [Unknown]
